FAERS Safety Report 12972074 (Version 1)
Quarter: 2016Q4

REPORT INFORMATION
  Report Type: Report from Study
  Country: US (occurrence: US)
  Receive Date: 20161124
  Receipt Date: 20161124
  Transmission Date: 20170207
  Serious: No
  Sender: FDA-Public Use
  Company Number: US-AMGEN-USASL2016159672

PATIENT
  Age: 47 Year
  Sex: Female

DRUGS (3)
  1. ENBREL [Suspect]
     Active Substance: ETANERCEPT
     Indication: PSORIATIC ARTHROPATHY
     Dosage: 25 MG
     Route: 065
     Dates: start: 20070901
  2. ENBREL [Suspect]
     Active Substance: ETANERCEPT
     Dosage: 25 MG, TWO 25 MG SHOTS ONCE A WEEK
     Route: 065
  3. ENBREL [Suspect]
     Active Substance: ETANERCEPT
     Dosage: 25 MG, TWO 25 MG SHOTS TWICE A WEEK
     Route: 065

REACTIONS (1)
  - Off label use [Unknown]
